FAERS Safety Report 6444465-2 (Version None)
Quarter: 2009Q4

REPORT INFORMATION
  Report Type: 
  Country: None (occurrence: None)
  Receive Date: 20091118
  Receipt Date: 20091113
  Transmission Date: 20100525
  Serious: No
  Sender: FDA-Public Use
  Company Number: US-B.I. PHARMACEUTICALS,INC./RIDGEFIELD-2009-BP-13276BP

PATIENT
  Sex: Female

DRUGS (9)
  1. SPIRIVA [Suspect]
     Indication: CHRONIC OBSTRUCTIVE PULMONARY DISEASE
     Dosage: 18 MCG
     Route: 055
     Dates: start: 20090901
  2. VENTOLIN HFA [Concomitant]
     Indication: CHRONIC OBSTRUCTIVE PULMONARY DISEASE
  3. COLACE [Concomitant]
     Indication: CONSTIPATION
  4. PHENERGAN HCL [Concomitant]
     Indication: NAUSEA
  5. RANITIDINE [Concomitant]
     Indication: HIATUS HERNIA
  6. TOPAMAX [Concomitant]
     Indication: FIBROMYALGIA
  7. OXYCONTIN [Concomitant]
     Indication: FIBROMYALGIA
  8. SYNTHROID [Concomitant]
     Indication: THYROID DISORDER
  9. BACLOFEN [Concomitant]
     Indication: FIBROMYALGIA

REACTIONS (3)
  - HEADACHE [None]
  - VASCULAR INJURY [None]
  - VISION BLURRED [None]
